FAERS Safety Report 17200960 (Version 1)
Quarter: 2019Q4

REPORT INFORMATION
  Report Type: Report from Study
  Country: MX (occurrence: MX)
  Receive Date: 20191226
  Receipt Date: 20191226
  Transmission Date: 20200122
  Serious: Yes (Death)
  Sender: FDA-Public Use
  Company Number: NVSC2019MX047375

PATIENT
  Age: 72 Year
  Sex: Male

DRUGS (1)
  1. DIOVAN [Suspect]
     Active Substance: VALSARTAN
     Indication: HYPERTENSION
     Dosage: 160 MG, QD
     Route: 048

REACTIONS (4)
  - Dizziness [Not Recovered/Not Resolved]
  - Dysarthria [Not Recovered/Not Resolved]
  - Death [Fatal]
  - Disorientation [Not Recovered/Not Resolved]

NARRATIVE: CASE EVENT DATE: 20191205
